FAERS Safety Report 5881881-1 (Version None)
Quarter: 2008Q3

REPORT INFORMATION
  Report Type: 
  Country: None (occurrence: None)
  Receive Date: 20080912
  Receipt Date: 20080806
  Transmission Date: 20090109
  Serious: No
  Sender: FDA-Public Use
  Company Number: US-ABBOTT-08P-163-0463994-00

PATIENT
  Sex: Male
  Weight: 72.64 kg

DRUGS (4)
  1. HUMIRA [Suspect]
     Indication: PSORIASIS
     Dosage: LOADING DOSE
     Route: 058
     Dates: start: 20080702, end: 20080702
  2. HUMIRA [Suspect]
     Route: 058
     Dates: start: 20080723
  3. WARFARIN SODIUM [Concomitant]
     Indication: DRUG USE FOR UNKNOWN INDICATION
     Route: 048
  4. TOPICAL CREAM [Concomitant]
     Indication: PSORIASIS
     Route: 061

REACTIONS (6)
  - DYSURIA [None]
  - FEELING HOT [None]
  - NECK PAIN [None]
  - PAIN [None]
  - POLLAKIURIA [None]
  - TENDON PAIN [None]
